FAERS Safety Report 20258005 (Version 1)
Quarter: 2021Q4

REPORT INFORMATION
  Report Type: Report from Study
  Country: US (occurrence: None)
  Receive Date: 20211230
  Receipt Date: 20211230
  Transmission Date: 20220304
  Serious: Yes (Other)
  Sender: FDA-Public Use
  Company Number: 2021A900297

PATIENT
  Weight: 68 kg

DRUGS (1)
  1. LYNPARZA [Suspect]
     Active Substance: OLAPARIB
     Indication: Uterine cancer
     Route: 048
     Dates: start: 20210920

REACTIONS (13)
  - Myelosuppression [Unknown]
  - Anaemia [Unknown]
  - Nephropathy toxic [Unknown]
  - Metastases to liver [Unknown]
  - Hepatic fibrosis [Unknown]
  - Hepatic lesion [Unknown]
  - Retroperitoneal mass [Unknown]
  - Transitional cell carcinoma [Unknown]
  - Retroperitoneal lymphadenopathy [Unknown]
  - Atrial fibrillation [Unknown]
  - Osteoporosis [Unknown]
  - Musculoskeletal discomfort [Unknown]
  - Back pain [Unknown]
